FAERS Safety Report 16198792 (Version 1)
Quarter: 2019Q2

REPORT INFORMATION
  Report Type: Spontaneous
  Country: JP (occurrence: JP)
  Receive Date: 20190415
  Receipt Date: 20190415
  Transmission Date: 20190711
  Serious: Yes (Hospitalization)
  Sender: FDA-Public Use
  Company Number: JP-JNJFOC-20190417434

PATIENT
  Age: 25 Year
  Sex: Female

DRUGS (3)
  1. METHOTREXATE. [Suspect]
     Active Substance: METHOTREXATE
     Indication: INFLAMMATORY BOWEL DISEASE
     Route: 065
  2. PREDNISOLONE. [Concomitant]
     Active Substance: PREDNISOLONE
     Route: 065
  3. INFLIXIMAB, RECOMBINANT [Suspect]
     Active Substance: INFLIXIMAB
     Indication: INFLAMMATORY BOWEL DISEASE
     Route: 042

REACTIONS (7)
  - Cellulitis [Unknown]
  - Pneumocystis jirovecii pneumonia [Unknown]
  - Oral candidiasis [Unknown]
  - Genital abscess [Unknown]
  - Herpes zoster [Unknown]
  - Genital herpes [Unknown]
  - Blood immunoglobulin G decreased [Unknown]
